FAERS Safety Report 23725339 (Version 1)
Quarter: 2024Q2

REPORT INFORMATION
  Report Type: Spontaneous
  Country: US (occurrence: US)
  Receive Date: 20240410
  Receipt Date: 20240410
  Transmission Date: 20240716
  Serious: No
  Sender: FDA-Public Use
  Company Number: US-CIPLA LTD.-2024US00499

PATIENT

DRUGS (3)
  1. LANREOTIDE ACETATE [Suspect]
     Active Substance: LANREOTIDE ACETATE
     Indication: Neuroendocrine carcinoma metastatic
     Dosage: UNK, FOR EVERY 28 DAYS
     Route: 065
     Dates: start: 20210308
  2. AZITHROMYCIN [Concomitant]
     Active Substance: AZITHROMYCIN
     Indication: Product used for unknown indication
     Dosage: UNK, 1 TABLET EVERY MONDAY, WEDNESDAY AND FRIDAY
     Route: 065
     Dates: start: 2016
  3. BREO ELLIPTA [Concomitant]
     Active Substance: FLUTICASONE FUROATE\VILANTEROL TRIFENATATE
     Indication: Asthma
     Dosage: UNK, 2MG/25 MCG, ONE PUFF DAILY
     Route: 065
     Dates: start: 2017

REACTIONS (3)
  - Product administration error [Unknown]
  - Product use complaint [Unknown]
  - Syringe issue [Unknown]

NARRATIVE: CASE EVENT DATE: 20240102
